FAERS Safety Report 7293572-3 (Version None)
Quarter: 2011Q1

REPORT INFORMATION
  Report Type: 
  Country: None (occurrence: None)
  Receive Date: 20110215
  Receipt Date: 20110204
  Transmission Date: 20110831
  Serious: Yes (Hospitalization)
  Sender: FDA-Public Use
  Company Number: FR-SANOFI-AVENTIS-2011SA005128

PATIENT
  Sex: Male
  Weight: 66 kg

DRUGS (6)
  1. NEBIVOLOL [Suspect]
     Dates: start: 20050101, end: 20101229
  2. ELISOR [Concomitant]
     Dates: start: 20100701, end: 20101201
  3. PLAVIX [Suspect]
     Indication: MYOCARDIAL INFARCTION
     Route: 048
     Dates: start: 20050101, end: 20101229
  4. EZETROL [Concomitant]
     Dates: start: 20101201
  5. OMACOR [Concomitant]
  6. PLAVIX [Suspect]
     Indication: STENT PLACEMENT
     Route: 048
     Dates: start: 20050101, end: 20101229

REACTIONS (4)
  - GLOMERULONEPHRITIS MEMBRANOUS [None]
  - NEPHROTIC SYNDROME [None]
  - ARTHRALGIA [None]
  - RASH [None]
